FAERS Safety Report 7834850 (Version 3)
Quarter: 2013Q2

REPORT INFORMATION
  Report Type: Spontaneous
  Country: US (occurrence: None)
  Receive Date: 20110204
  Receipt Date: 20130528
  Transmission Date: 20140414
  Serious: Yes (Other)
  Sender: FDA-Public Use
  Company Number: DSA_44848_2011

PATIENT
  Age: 44 Year
  Sex: Female

DRUGS (2)
  1. WELLBUTRIN [Suspect]
     Indication: DEPRESSION
     Dosage: (DF ORAL)
     Route: 048
     Dates: end: 20100802
  2. REBIF [Suspect]
     Indication: MULTIPLE SCLEROSIS
     Dosage: (44 MCG, THREE TIMES PER WEEK, SUBCUTANEOUS)
     Route: 058
     Dates: start: 20080314, end: 20101001

REACTIONS (9)
  - CONVULSION [None]
  - AMNESIA [None]
  - CONTUSION [None]
  - INJECTION SITE HAEMATOMA [None]
  - MULTIPLE SCLEROSIS RELAPSE [None]
  - FALL [None]
  - Multiple sclerosis relapse [None]
  - Drug ineffective [None]
  - Grand mal convulsion [None]
